FAERS Safety Report 12856581 (Version 2)
Quarter: 2017Q1

REPORT INFORMATION
  Report Type: Spontaneous
  Country: DE (occurrence: DE)
  Receive Date: 20161018
  Receipt Date: 20170221
  Transmission Date: 20170428
  Serious: Yes (Hospitalization, Other)
  Sender: FDA-Public Use
  Company Number: PHHY2016DE081077

PATIENT
  Age: 47 Year
  Sex: Female

DRUGS (2)
  1. CLINDAMYCIN. [Suspect]
     Active Substance: CLINDAMYCIN
     Indication: OTITIS EXTERNA
     Dosage: UNK
     Route: 065
  2. COSENTYX [Suspect]
     Active Substance: SECUKINUMAB
     Indication: PSORIASIS
     Dosage: 150 MG, PREFILLED SYRINGE
     Route: 065

REACTIONS (5)
  - Incorrect dose administered [Unknown]
  - Otitis externa [Recovered/Resolved]
  - Pseudomembranous colitis [Recovering/Resolving]
  - Diverticular perforation [Recovering/Resolving]
  - Otitis externa [Recovered/Resolved]

NARRATIVE: CASE EVENT DATE: 201604
